FAERS Safety Report 23388925 (Version 1)
Quarter: 2024Q1

REPORT INFORMATION
  Report Type: Spontaneous
  Country: US (occurrence: US)
  Receive Date: 20240110
  Receipt Date: 20240110
  Transmission Date: 20240410
  Serious: Yes (Other)
  Sender: FDA-Public Use
  Company Number: US-BAUSCHBL-2024BNL000179

PATIENT
  Sex: Male

DRUGS (1)
  1. XIPERE [Suspect]
     Active Substance: TRIAMCINOLONE ACETONIDE
     Indication: Product used for unknown indication
     Dosage: PATIENT HAD THE INJECTION SUCCESSFULLY IN HIS LEFT EYE TWICE
     Route: 065

REACTIONS (1)
  - Procedural failure [Unknown]

NARRATIVE: CASE EVENT DATE: 20240103
